FAERS Safety Report 7104583-2 (Version None)
Quarter: 2010Q4

REPORT INFORMATION
  Report Type: 
  Country: None (occurrence: None)
  Receive Date: 20101109
  Receipt Date: 20101025
  Transmission Date: 20110411
  Serious: Yes (Death)
  Sender: FDA-Public Use
  Company Number: AUR-APL-2010-02733

PATIENT
  Age: 55 Year

DRUGS (4)
  1. PAROXETINE [Suspect]
     Indication: PRODUCT USED FOR UNKNOWN INDICATION
  2. PAXIL CR [Suspect]
     Indication: PRODUCT USED FOR UNKNOWN INDICATION
     Dosage: 25MG-TOOK-180 TABS
  3. ATOMOXETINE HCL [Concomitant]
  4. WELLBUTRIN SR [Concomitant]

REACTIONS (11)
  - AGITATION [None]
  - CLONUS [None]
  - DISORIENTATION [None]
  - ELECTROCARDIOGRAM QT PROLONGED [None]
  - OVERDOSE [None]
  - PNEUMONIA ASPIRATION [None]
  - PROTEIN TOTAL INCREASED [None]
  - PULMONARY EMBOLISM [None]
  - PULSE ABSENT [None]
  - SEROTONIN SYNDROME [None]
  - TREMOR [None]
